FAERS Safety Report 5444523-5 (Version None)
Quarter: 2007Q3

REPORT INFORMATION
  Report Type: 
  Country: None (occurrence: None)
  Receive Date: 20070904
  Receipt Date: 20070904
  Transmission Date: 20080115
  Serious: Yes (Life-Threatening, Hospitalization, Other)
  Sender: FDA-Public Use
  Company Number: None

PATIENT
  Age: 89 Year
  Sex: Female
  Weight: 43.9 kg

DRUGS (4)
  1. DULOXETINE [Suspect]
     Indication: DEMENTIA
     Dosage: 30MG DAILY PO LESS THAN 5 MONTHS
     Route: 048
  2. DULOXETINE [Suspect]
     Indication: DEPRESSION
     Dosage: 30MG DAILY PO LESS THAN 5 MONTHS
     Route: 048
  3. ALENDRONATE SODIUM [Concomitant]
  4. ACETAMINOPHEN [Concomitant]

REACTIONS (2)
  - BACK PAIN [None]
  - HYPERTENSIVE CRISIS [None]
